FAERS Safety Report 7436052-4 (Version None)
Quarter: 2011Q2

REPORT INFORMATION
  Report Type: 
  Country: None (occurrence: None)
  Receive Date: 20110425
  Receipt Date: 20090325
  Transmission Date: 20111010
  Serious: Yes (Other)
  Sender: FDA-Public Use
  Company Number: DE-GENENTECH-316912

PATIENT
  Age: 70 Year
  Sex: Female

DRUGS (1)
  1. LUCENTIS [Suspect]
     Indication: MACULAR DEGENERATION
     Dosage: UNK
     Route: 031
     Dates: start: 20080528

REACTIONS (9)
  - MALAISE [None]
  - BLOOD PRESSURE ABNORMAL [None]
  - VISUAL IMPAIRMENT [None]
  - VITREOUS OPACITIES [None]
  - MACULAR DEGENERATION [None]
  - MYOCARDIAL INFARCTION [None]
  - EYE HAEMORRHAGE [None]
  - DEAFNESS [None]
  - VISUAL ACUITY REDUCED [None]
